FAERS Safety Report 9444298 (Version 4)
Quarter: 2013Q4

REPORT INFORMATION
  Report Type: Spontaneous
  Country: US (occurrence: None)
  Receive Date: 20130805
  Receipt Date: 20131227
  Transmission Date: 20140711
  Serious: Yes (Death)
  Sender: FDA-Public Use
  Company Number: None

PATIENT
  Age: 21 Year
  Sex: Male
  Weight: 61.82 kg

DRUGS (2)
  1. FENTANYL CITRATE [Suspect]
     Indication: LIMB OPERATION
     Route: 042
     Dates: start: 20130717, end: 20130717
  2. PROPOFOL [Suspect]
     Indication: LIMB OPERATION
     Route: 042
     Dates: start: 20130717, end: 20130717

REACTIONS (5)
  - Hypotension [None]
  - Cardiac arrest [None]
  - Procedural complication [None]
  - Disease complication [None]
  - Asthma [None]
